FAERS Safety Report 4311755-9 (Version None)
Quarter: 2004Q1

REPORT INFORMATION
  Report Type: 
  Country: None (occurrence: None)
  Receive Date: 20040304
  Receipt Date: 20040304
  Transmission Date: 20041129
  Serious: No
  Sender: FDA-Public Use
  Company Number: None

PATIENT
  Age: 31 Year
  Sex: Male
  Weight: 81.6 kg

DRUGS (19)
  1. ZYVOX [Suspect]
     Indication: INFECTION
     Dosage: 600 MG Q12H INTRAVENOUS
     Route: 042
     Dates: start: 20040209, end: 20040303
  2. CLARITIN-D 24 HOUR [Suspect]
     Indication: NASAL CONGESTION
     Dosage: 1 TABLET ONE DOSE ORAL
     Route: 048
     Dates: start: 20040302, end: 20040302
  3. PRIMAXIN [Concomitant]
  4. ZOLOFT [Concomitant]
  5. FLAGYL [Concomitant]
  6. PREVACID [Concomitant]
  7. DIDRONEL [Concomitant]
  8. ZINC SULFATE [Concomitant]
  9. VITAMIN C [Concomitant]
  10. DITROPAN [Concomitant]
  11. FERROUS SULFATE TAB [Concomitant]
  12. BACLOFEN [Concomitant]
  13. NEURONTIN [Concomitant]
  14. PROAMATINE [Concomitant]
  15. ZOFRAN [Concomitant]
  16. BENADRYL [Concomitant]
  17. TUMS [Concomitant]
  18. DILAUDID [Concomitant]
  19. PERCOCET [Concomitant]

REACTIONS (3)
  - BLOOD PRESSURE SYSTOLIC INCREASED [None]
  - GRAND MAL CONVULSION [None]
  - HEADACHE [None]
